FAERS Safety Report 24456109 (Version 2)
Quarter: 2024Q4

REPORT INFORMATION
  Report Type: Report from Study
  Country: US (occurrence: US)
  Receive Date: 20241017
  Receipt Date: 20241018
  Transmission Date: 20250115
  Serious: No
  Sender: ROCHE
  Company Number: US-ROCHE-3502656

PATIENT
  Age: 51 Year
  Sex: Male

DRUGS (6)
  1. RITUXAN [Suspect]
     Active Substance: RITUXIMAB
     Indication: Multiple sclerosis
     Dosage: QUANTITY: 2500MG? FREQUENCY TEXT:DAY 1 AND DAY 15
     Route: 041
  2. GABAPENTIN [Concomitant]
     Active Substance: GABAPENTIN
  3. ESCITALOPRAM [Concomitant]
     Active Substance: ESCITALOPRAM OXALATE
  4. METHYLPHENIDATE [Concomitant]
     Active Substance: METHYLPHENIDATE
  5. ARMODAFINIL [Concomitant]
     Active Substance: ARMODAFINIL
  6. AMITRIPTYLINE [Concomitant]
     Active Substance: AMITRIPTYLINE

REACTIONS (2)
  - Off label use [Unknown]
  - No adverse event [Unknown]
